FAERS Safety Report 25730278 (Version 1)
Quarter: 2025Q3

REPORT INFORMATION
  Report Type: Report from Study
  Country: US (occurrence: US)
  Receive Date: 20250827
  Receipt Date: 20250827
  Transmission Date: 20251021
  Serious: No
  Sender: UCB
  Company Number: US-UCBSA-2025039874

PATIENT

DRUGS (2)
  1. ROZANOLIXIZUMAB [Suspect]
     Active Substance: ROZANOLIXIZUMAB
     Indication: Myasthenia gravis
     Route: 058
  2. ROZANOLIXIZUMAB [Suspect]
     Active Substance: ROZANOLIXIZUMAB
     Indication: Off label use
     Route: 042

REACTIONS (1)
  - No adverse event [Unknown]
